FAERS Safety Report 7936356-2 (Version None)
Quarter: 2011Q4

REPORT INFORMATION
  Report Type: 
  Country: None (occurrence: None)
  Receive Date: 20111123
  Receipt Date: 20111120
  Transmission Date: 20120403
  Serious: Yes (Other)
  Sender: FDA-Public Use
  Company Number: BR-PFIZER INC-2011168209

PATIENT
  Sex: Female

DRUGS (2)
  1. PROVERA [Suspect]
     Indication: OFF LABEL USE
     Dosage: UNK
     Route: 048
     Dates: start: 20101201
  2. PROVERA [Suspect]
     Indication: MENSTRUATION DELAYED

REACTIONS (1)
  - PREMATURE SEPARATION OF PLACENTA [None]
